FAERS Safety Report 12478686 (Version 2)
Quarter: 2016Q2

REPORT INFORMATION
  Report Type: Spontaneous
  Country: AU (occurrence: AU)
  Receive Date: 20160619
  Receipt Date: 20160630
  Transmission Date: 20160815
  Serious: Yes (Other)
  Sender: FDA-Public Use
  Company Number: AU-BAXTER-2016BAX031101

PATIENT
  Age: 62 Year
  Sex: Female

DRUGS (12)
  1. LORATADINE. [Suspect]
     Active Substance: LORATADINE
     Indication: PREMEDICATION
     Route: 048
  2. [PSS GPN] PACLITAXEL [Suspect]
     Active Substance: PACLITAXEL
     Indication: BREAST CANCER
     Dosage: UNSPECIFIED CYCLE
     Route: 042
     Dates: start: 20160330
  3. IRBESARTAN. [Concomitant]
     Active Substance: IRBESARTAN
     Indication: PRODUCT USED FOR UNKNOWN INDICATION
     Dosage: MORNING
     Route: 048
  4. BAXTER 0.9% SODIUM CHLORIDE 9G_L INJECTION BP BAG AHB1324 [Suspect]
     Active Substance: SODIUM CHLORIDE
     Indication: MEDICATION DILUTION
     Dosage: UNSPECIFIED CYCLE
     Route: 042
     Dates: start: 20160330
  5. BAXTER 0.9% SODIUM CHLORIDE 9G_L INJECTION BP BAG AHB1324 [Suspect]
     Active Substance: SODIUM CHLORIDE
     Dosage: CYCLE 4, D8, 11TH DOSE
     Route: 042
     Dates: start: 20160608, end: 20160608
  6. METOCLOPRAMIDE. [Suspect]
     Active Substance: METOCLOPRAMIDE
     Indication: PREMEDICATION
     Route: 048
  7. [PSS GPN] PACLITAXEL [Suspect]
     Active Substance: PACLITAXEL
     Dosage: DOSE REINTRODUCED
     Route: 042
     Dates: start: 20160608
  8. DENOSUMAB [Concomitant]
     Active Substance: DENOSUMAB
     Indication: OSTEOPOROSIS
     Route: 058
  9. [PSS GPN] PACLITAXEL [Suspect]
     Active Substance: PACLITAXEL
     Dosage: CYCLE 4, D8, 11TH DOSE
     Route: 042
     Dates: start: 20160608, end: 20160608
  10. RANITIDINE. [Suspect]
     Active Substance: RANITIDINE
     Indication: PREMEDICATION
     Route: 048
  11. RANITIDINE. [Suspect]
     Active Substance: RANITIDINE
     Route: 065
     Dates: start: 20160608
  12. BAXTER 0.9% SODIUM CHLORIDE 9G_L INJECTION BP BAG AHB1324 [Suspect]
     Active Substance: SODIUM CHLORIDE
     Dosage: DOSE RE-INTRODUCED
     Route: 042
     Dates: start: 20160608

REACTIONS (3)
  - Feeling hot [Recovered/Resolved]
  - Dyspnoea [Recovered/Resolved]
  - Flushing [Recovered/Resolved]

NARRATIVE: CASE EVENT DATE: 20160608
